FAERS Safety Report 16112082 (Version 1)
Quarter: 2019Q1

REPORT INFORMATION
  Report Type: Report from Study
  Country: IT (occurrence: IT)
  Receive Date: 20190325
  Receipt Date: 20190325
  Transmission Date: 20190418
  Serious: Yes (Other)
  Sender: FDA-Public Use
  Company Number: IT-TEVA-2019-IT-1027560

PATIENT
  Age: 8 Year
  Sex: Male
  Weight: 53 kg

DRUGS (13)
  1. VINCRISTINE [Suspect]
     Active Substance: VINCRISTINE
     Indication: T-CELL TYPE ACUTE LEUKAEMIA
     Route: 042
     Dates: start: 20190121, end: 20190207
  2. DAUNOBLASTINA [Suspect]
     Active Substance: DAUNORUBICIN
     Indication: T-CELL TYPE ACUTE LEUKAEMIA
     Route: 042
     Dates: start: 20190121, end: 20190207
  3. URBASON [Concomitant]
     Active Substance: METHYLPREDNISOLONE
     Route: 037
     Dates: start: 20190116, end: 20190128
  4. PEGASPARGASE [Suspect]
     Active Substance: PEGASPARGASE
     Indication: T-CELL TYPE ACUTE LEUKAEMIA
     Route: 042
     Dates: start: 20190125
  5. OMEPRAZOLE. [Concomitant]
     Active Substance: OMEPRAZOLE
     Dosage: 40 MILLIGRAM DAILY;
     Route: 048
  6. ANTITHROMBIN III HUMAN [Concomitant]
     Active Substance: ANTITHROMBIN III HUMAN
     Route: 042
     Dates: start: 20190131
  7. ELAZOR [Concomitant]
     Active Substance: FLUCONAZOLE
     Indication: TINEA VERSICOLOUR
     Dosage: 1 DOSAGE FORMS DAILY;
     Route: 048
     Dates: start: 20190131
  8. ENAPREN [Concomitant]
     Active Substance: ENALAPRIL MALEATE
     Dosage: 5 MILLIGRAM DAILY;
     Route: 048
     Dates: start: 20190125
  9. DECADRON [Concomitant]
     Active Substance: DEXAMETHASONE
     Dosage: 14.25 MILLIGRAM DAILY;
     Route: 048
  10. BACTRIM [Concomitant]
     Active Substance: SULFAMETHOXAZOLE\TRIMETHOPRIM
     Route: 048
  11. MYCOSTATIN [Concomitant]
     Active Substance: NYSTATIN
     Dosage: 15 ML DAILY;
     Route: 048
     Dates: start: 20190113
  12. METHOTREXATE. [Suspect]
     Active Substance: METHOTREXATE
     Indication: T-CELL TYPE ACUTE LEUKAEMIA
     Route: 037
     Dates: start: 20190116, end: 20190128
  13. TROSYD 1% EMULSIONE CUTANEA [Concomitant]
     Indication: TINEA VERSICOLOUR
     Dosage: EMULSION
     Route: 003
     Dates: start: 20190131

REACTIONS (3)
  - Neutropenia [Recovered/Resolved]
  - Anaemia [Recovered/Resolved]
  - Leukopenia [Recovered/Resolved]

NARRATIVE: CASE EVENT DATE: 20190204
